FAERS Safety Report 19056625 (Version 1)
Quarter: 2021Q1

REPORT INFORMATION
  Report Type: Spontaneous
  Country: JP (occurrence: JP)
  Receive Date: 20210325
  Receipt Date: 20210325
  Transmission Date: 20210420
  Serious: Yes (Other)
  Sender: FDA-Public Use
  Company Number: JP-PFIZER INC-2021269384

PATIENT
  Age: 6 Decade
  Sex: Male

DRUGS (1)
  1. LORBRENA [Suspect]
     Active Substance: LORLATINIB
     Dosage: EVERY MORNING
     Route: 048
     Dates: start: 20210302

REACTIONS (5)
  - Loss of consciousness [Recovering/Resolving]
  - Nervous system disorder [Unknown]
  - Fall [Unknown]
  - Anger [Unknown]
  - Head injury [Unknown]

NARRATIVE: CASE EVENT DATE: 20210311
